FAERS Safety Report 21436886 (Version 1)
Quarter: 2022Q4

REPORT INFORMATION
  Report Type: Spontaneous
  Country: RU (occurrence: RU)
  Receive Date: 20221010
  Receipt Date: 20221010
  Transmission Date: 20230113
  Serious: Yes (Other)
  Sender: FDA-Public Use
  Company Number: RU-009507513-2210RUS001812

PATIENT
  Age: 14 Year
  Sex: Female
  Weight: 77 kg

DRUGS (1)
  1. TEMODAL [Suspect]
     Active Substance: TEMOZOLOMIDE
     Indication: Glioma
     Dosage: 75 MILLIGRAM/SQ. METER (MG PER SQ.M)
     Dates: start: 20220921, end: 20220923

REACTIONS (1)
  - Eyelid ptosis [Recovered/Resolved]

NARRATIVE: CASE EVENT DATE: 20220922
